FAERS Safety Report 7764342-4 (Version None)
Quarter: 2011Q3

REPORT INFORMATION
  Report Type: 
  Country: None (occurrence: None)
  Receive Date: 20110921
  Receipt Date: 20110919
  Transmission Date: 20111222
  Serious: Yes (Hospitalization)
  Sender: FDA-Public Use
  Company Number: US-BRISTOL-MYERS SQUIBB COMPANY-16047961

PATIENT
  Age: 53 Year
  Sex: Male
  Weight: 75 kg

DRUGS (10)
  1. AMBIEN [Concomitant]
     Indication: INSOMNIA
  2. FENTANYL [Concomitant]
     Indication: PAIN
  3. VITAMIN B-12 [Concomitant]
     Dates: start: 20110809
  4. CARBOPLATIN [Suspect]
     Indication: NON-SMALL CELL LUNG CANCER
     Dosage: 1DF=6AUC REGIMEN 1
     Route: 042
     Dates: start: 20110815
  5. FOLIC ACID [Concomitant]
     Dates: start: 20110809
  6. PEMETREXED DISODIUM [Suspect]
     Indication: NON-SMALL CELL LUNG CANCER
     Dosage: REGIMEN 1
     Route: 042
     Dates: start: 20110815
  7. PROCHLORPERAZINE [Concomitant]
     Indication: NAUSEA
  8. ZOFRAN [Concomitant]
     Indication: NAUSEA
  9. OXYCODONE HCL AND ACETAMINOPHEN [Concomitant]
  10. METOPROLOL TARTRATE [Concomitant]

REACTIONS (1)
  - CARDIAC FAILURE CONGESTIVE [None]
